FAERS Safety Report 6171102-7 (Version None)
Quarter: 2009Q2

REPORT INFORMATION
  Report Type: 
  Country: None (occurrence: None)
  Receive Date: 20090429
  Receipt Date: 20090420
  Transmission Date: 20091009
  Serious: Yes (Disabling, Other)
  Sender: FDA-Public Use
  Company Number: PHEH2008US11144

PATIENT
  Sex: Female
  Weight: 59.5 kg

DRUGS (16)
  1. RECLAST [Suspect]
     Indication: OSTEOPOROSIS
     Dosage: 5 MG, ONCE/SINGLE
     Dates: start: 20080929, end: 20080929
  2. NEURONTIN [Concomitant]
     Dosage: 300 MG, UNK
     Route: 048
  3. NEXIUM [Concomitant]
     Dosage: 40 MG, UNK
  4. ELAVIL [Concomitant]
     Dosage: 10/20
  5. TRIEST [Concomitant]
     Dosage: 2 MG, UNK
  6. THYROID TAB [Concomitant]
     Dosage: 60 UG, UNK
  7. VITAMIN D3 [Concomitant]
     Dosage: 5000 UNITS/D
  8. NIACIN [Concomitant]
     Dosage: 300 MG, UNK
  9. VITAMIN B-12 [Concomitant]
     Dosage: 1000 UG, UNK
  10. OREGANO [Concomitant]
  11. VITAMIN A [Concomitant]
     Dosage: 12500 U, UNK
  12. DHEA [Concomitant]
     Dosage: 25 MG, UNK
  13. FLAXSEED OIL [Concomitant]
     Dosage: 6 G, UNK
  14. IODINE [Concomitant]
     Dosage: 650 MG, UNK
  15. OS-CAL [Concomitant]
     Dosage: 500 MG, BID
  16. SELENIUM [Concomitant]

REACTIONS (7)
  - BIOPSY SKIN ABNORMAL [None]
  - DRUG ERUPTION [None]
  - EXCORIATION [None]
  - PERIVASCULAR DERMATITIS [None]
  - PRURITUS [None]
  - RASH ERYTHEMATOUS [None]
  - RASH MACULO-PAPULAR [None]
